FAERS Safety Report 7323772-5 (Version None)
Quarter: 2011Q1

REPORT INFORMATION
  Report Type: 
  Country: None (occurrence: None)
  Receive Date: 20110301
  Receipt Date: 20110225
  Transmission Date: 20110831
  Serious: Yes (Other)
  Sender: FDA-Public Use
  Company Number: RS-JNJFOC-20100110332

PATIENT
  Age: 16 Year
  Sex: Female

DRUGS (2)
  1. TOPAMAX [Suspect]
     Indication: EPILEPSY
     Route: 048
  2. LAMICTAL [Concomitant]
     Indication: EPILEPSY
     Route: 048

REACTIONS (3)
  - BLINDNESS TRANSIENT [None]
  - PAPILLOEDEMA [None]
  - HYPERSENSITIVITY [None]
